FAERS Safety Report 7190136-7 (Version None)
Quarter: 2010Q4

REPORT INFORMATION
  Report Type: 
  Country: None (occurrence: None)
  Receive Date: 20101223
  Receipt Date: 20101216
  Transmission Date: 20110411
  Serious: Yes (Death)
  Sender: FDA-Public Use
  Company Number: FR-ASTELLAS-2010EU006665

PATIENT
  Age: 79 Year
  Sex: Female
  Weight: 69 kg

DRUGS (2)
  1. MICAFUNGIN INJECTION [Suspect]
     Indication: SYSTEMIC CANDIDA
     Dosage: 1000 MG, UID/QD
     Route: 042
     Dates: start: 20101109, end: 20101110
  2. MICAFUNGIN INJECTION [Suspect]
     Dosage: 100 MG, UNKNOWN/D
     Route: 042
     Dates: start: 20101110, end: 20101114

REACTIONS (3)
  - ACUTE RESPIRATORY DISTRESS SYNDROME [None]
  - RECTAL HAEMORRHAGE [None]
  - SEPTIC SHOCK [None]
